FAERS Safety Report 13552003 (Version 1)
Quarter: 2017Q2

REPORT INFORMATION
  Report Type: Report from Study
  Country: BR (occurrence: BR)
  Receive Date: 20170516
  Receipt Date: 20170516
  Transmission Date: 20170830
  Serious: Yes (Other)
  Sender: FDA-Public Use
  Company Number: BR-ELI_LILLY_AND_COMPANY-BR201705004421

PATIENT
  Age: 79 Year
  Sex: Male

DRUGS (1)
  1. CETUXIMAB. [Suspect]
     Active Substance: CETUXIMAB
     Indication: OROPHARYNGEAL CANCER
     Dosage: 330 MG, WEEKLY (1/W)
     Route: 042
     Dates: start: 20170327

REACTIONS (5)
  - Oxygen saturation decreased [Unknown]
  - Tremor [Unknown]
  - Hypothermia [Unknown]
  - Blood pressure abnormal [Unknown]
  - Pallor [Unknown]

NARRATIVE: CASE EVENT DATE: 20170419
